FAERS Safety Report 8033987-9 (Version None)
Quarter: 2012Q1

REPORT INFORMATION
  Report Type: 
  Country: None (occurrence: None)
  Receive Date: 20120110
  Receipt Date: 20120105
  Transmission Date: 20120608
  Serious: Yes (Hospitalization, Disabling)
  Sender: FDA-Public Use
  Company Number: US-MERCK-1106USA01029

PATIENT
  Age: 70 Year
  Sex: Female

DRUGS (6)
  1. FOSAMAX [Suspect]
     Indication: OSTEOPOROSIS
     Route: 048
     Dates: start: 20020401, end: 20061101
  2. MAGNESIUM CITRATE [Concomitant]
     Route: 065
     Dates: start: 19800101
  3. VITAMIN D (UNSPECIFIED) [Concomitant]
     Route: 065
     Dates: start: 19800101
  4. CALCIUM (UNSPECIFIED) [Concomitant]
     Route: 065
     Dates: start: 19800101
  5. FOSAMAX PLUS D [Suspect]
     Indication: OSTEOPOROSIS
     Route: 048
     Dates: start: 20061201, end: 20070501
  6. VITAMINS (UNSPECIFIED) [Concomitant]
     Route: 065
     Dates: start: 19800101

REACTIONS (10)
  - STRESS FRACTURE [None]
  - GASTROOESOPHAGEAL REFLUX DISEASE [None]
  - FEMUR FRACTURE [None]
  - ADVERSE EVENT [None]
  - CARDIOVASCULAR DISORDER [None]
  - ATRIAL FIBRILLATION [None]
  - ANXIETY [None]
  - LACERATION [None]
  - LOW TURNOVER OSTEOPATHY [None]
  - OSTEOPOROSIS [None]
